FAERS Safety Report 6033093-9 (Version None)
Quarter: 2009Q1

REPORT INFORMATION
  Report Type: 
  Country: None (occurrence: None)
  Receive Date: 20090109
  Receipt Date: 20081218
  Transmission Date: 20090719
  Serious: Yes (Other)
  Sender: FDA-Public Use
  Company Number: FR-ELI_LILLY_AND_COMPANY-FR200901000500

PATIENT
  Age: 71 Year
  Sex: Female

DRUGS (3)
  1. OPTRUMA [Suspect]
     Indication: OSTEOPOROSIS
     Dosage: UNK, UNKNOWN
     Route: 048
     Dates: start: 20070101, end: 20081001
  2. CALCIDOSE [Concomitant]
     Dosage: 500, UNKNOWN
     Route: 065
  3. MUTAGRIP [Concomitant]
     Dosage: UNK, UNKNOWN
     Route: 065
     Dates: start: 20081101

REACTIONS (4)
  - BREAST CANCER [None]
  - MALAISE [None]
  - THROMBOCYTOPENIA [None]
  - TUMOUR MARKER INCREASED [None]
